FAERS Safety Report 4581647-9 (Version None)
Quarter: 2005Q1

REPORT INFORMATION
  Report Type: 
  Country: None (occurrence: None)
  Receive Date: 20050214
  Receipt Date: 20041208
  Transmission Date: 20050727
  Serious: No
  Sender: FDA-Public Use
  Company Number: US-GLAXOSMITHKLINE-A0536644A

PATIENT

DRUGS (5)
  1. LAMICTAL [Suspect]
     Indication: ILL-DEFINED DISORDER
     Dosage: 100MG PER DAY
     Route: 048
  2. EFFEXOR [Concomitant]
  3. VICODIN [Concomitant]
  4. SYNTHROID [Concomitant]
  5. XANAX [Concomitant]

REACTIONS (1)
  - RASH [None]
